FAERS Safety Report 4399882-1 (Version None)
Quarter: 2004Q3

REPORT INFORMATION
  Report Type: 
  Country: None (occurrence: None)
  Receive Date: 20040716
  Receipt Date: 20040701
  Transmission Date: 20050211
  Serious: Yes (Other)
  Sender: FDA-Public Use
  Company Number: JP-JNJFOC-20040702328

PATIENT
  Age: 52 Year
  Sex: Female

DRUGS (10)
  1. RISPERDAL [Suspect]
     Indication: SCHIZOPHRENIA
     Dosage: SEE IMAGE
     Route: 048
     Dates: start: 20031112, end: 20031209
  2. RISPERDAL [Suspect]
     Indication: SCHIZOPHRENIA
     Dosage: SEE IMAGE
     Route: 048
     Dates: start: 20031210, end: 20040120
  3. RISPERDAL [Suspect]
     Indication: SCHIZOPHRENIA
     Dosage: SEE IMAGE
     Route: 048
     Dates: start: 20040121, end: 20040217
  4. RISPERDAL [Suspect]
     Indication: SCHIZOPHRENIA
     Dosage: SEE IMAGE
     Route: 048
     Dates: start: 20040218
  5. FLUNITRAZEPAM (FLUNITRAZEPAM) [Concomitant]
  6. TRIHEXYPHENIDYL HCL [Concomitant]
  7. ETIZOLAM (ETIZOLAM) [Concomitant]
  8. LORAZEPAM [Concomitant]
  9. OLANZAPINE [Concomitant]
  10. QUAZEPAM [Concomitant]

REACTIONS (4)
  - CONSTIPATION [None]
  - LEUKOPENIA [None]
  - THIRST [None]
  - WEIGHT INCREASED [None]
